FAERS Safety Report 14888611 (Version 5)
Quarter: 2018Q3

REPORT INFORMATION
  Report Type: Spontaneous
  Country: US (occurrence: US)
  Receive Date: 20180513
  Receipt Date: 20180911
  Transmission Date: 20181010
  Serious: No
  Sender: FDA-Public Use
  Company Number: US-ASTRAZENECA-2018SE56116

PATIENT
  Sex: Female

DRUGS (2)
  1. TUDORZA PRESSAIR [Suspect]
     Active Substance: ACLIDINIUM BROMIDE
     Route: 055
  2. OXYGEN. [Concomitant]
     Active Substance: OXYGEN

REACTIONS (7)
  - Dyspnoea [Unknown]
  - Drug dose omission [Unknown]
  - Malaise [Unknown]
  - Fatigue [Unknown]
  - Device malfunction [Unknown]
  - Device failure [Unknown]
  - Chronic obstructive pulmonary disease [Unknown]
